FAERS Safety Report 9827042 (Version 1)
Quarter: 2014Q1

REPORT INFORMATION
  Report Type: Spontaneous
  Country: US (occurrence: US)
  Receive Date: 20140117
  Receipt Date: 20140117
  Transmission Date: 20141002
  Serious: No
  Sender: FDA-Public Use
  Company Number: US-GLAXOSMITHKLINE-A1027680A

PATIENT
  Age: 68 Year
  Sex: Male

DRUGS (2)
  1. PROMACTA [Suspect]
     Indication: IMMUNE THROMBOCYTOPENIC PURPURA
     Dosage: 25MG PER DAY
     Route: 048
     Dates: start: 20130202, end: 20130611
  2. NO CONCURRENT MEDICATION [Concomitant]

REACTIONS (1)
  - White blood cell count decreased [Not Recovered/Not Resolved]
